FAERS Safety Report 15239089 (Version 2)
Quarter: 2018Q3

REPORT INFORMATION
  Report Type: Spontaneous
  Country: BR (occurrence: BR)
  Receive Date: 20180803
  Receipt Date: 20180823
  Transmission Date: 20181010
  Serious: No
  Sender: FDA-Public Use
  Company Number: BR-SA-2018SA206534

PATIENT
  Sex: Female
  Weight: 65 kg

DRUGS (2)
  1. CLEXANE [Suspect]
     Active Substance: ENOXAPARIN SODIUM
     Indication: HYPERCOAGULATION
     Dosage: UNK UNK, QD
     Route: 058
     Dates: start: 20180623
  2. OESTROGEL [Concomitant]
     Active Substance: ESTRADIOL
     Indication: HORMONE THERAPY
     Dosage: UNK UNK, TID
     Route: 065
     Dates: start: 20180623

REACTIONS (1)
  - Exposure during pregnancy [Unknown]
